FAERS Safety Report 10625371 (Version 1)
Quarter: 2014Q4

REPORT INFORMATION
  Report Type: Spontaneous
  Country: IN (occurrence: None)
  Receive Date: 20141202
  Receipt Date: 20141202
  Transmission Date: 20150529
  Serious: Yes (Other)
  Sender: FDA-Public Use
  Company Number: IPC201411-000637

PATIENT
  Age: 49 Year
  Sex: Female

DRUGS (6)
  1. PROPRANOLOL HYDROCHLORIDE (PROPRANOLOL HYDROCHLORIDE) (PROPRANOLOL HYDROCHLORIDE) [Suspect]
     Active Substance: PROPRANOLOL HYDROCHLORIDE
  2. LEVOSULPIRIDE (LEVOSULPIRIDE) [Suspect]
     Active Substance: LEVOSULPIRIDE
  3. AMISULPRIDE (AMISULPRIDE) [Suspect]
     Active Substance: AMISULPRIDE
  4. ELTROXINE [Suspect]
     Active Substance: LEVOTHYROXINE
  5. ESCITALOPRAM [Suspect]
     Active Substance: ESCITALOPRAM OXALATE
  6. PAROXETINE [Suspect]
     Active Substance: PAROXETINE\PAROXETINE HYDROCHLORIDE

REACTIONS (3)
  - Parkinsonism [None]
  - Tardive dyskinesia [None]
  - Torticollis [None]
